FAERS Safety Report 4763614-5 (Version None)
Quarter: 2005Q3

REPORT INFORMATION
  Report Type: 
  Country: None (occurrence: None)
  Receive Date: 20050908
  Receipt Date: 20050614
  Transmission Date: 20060218
  Serious: Yes (Disabling)
  Sender: FDA-Public Use
  Company Number: PHHO2005JP09482

PATIENT
  Age: 87 Year
  Sex: Female
  Weight: 64 kg

DRUGS (7)
  1. LOCHOL [Suspect]
     Indication: HYPERCHOLESTEROLAEMIA
     Dosage: 20 MG, QD
     Route: 048
     Dates: start: 20001006
  2. KETAS [Concomitant]
  3. FRANDOL [Concomitant]
  4. NICARDIPINE HCL [Concomitant]
  5. SLO-BID [Concomitant]
  6. GRAMALIL [Concomitant]
  7. DEKASOFT [Concomitant]

REACTIONS (3)
  - CEREBRAL INFARCTION [None]
  - HEMIPLEGIA [None]
  - MONOPLEGIA [None]
